FAERS Safety Report 11837353 (Version 1)
Quarter: 2015Q4

REPORT INFORMATION
  Report Type: Spontaneous
  Country: US (occurrence: US)
  Receive Date: 20151215
  Receipt Date: 20151215
  Transmission Date: 20160305
  Serious: No
  Sender: FDA-Public Use
  Company Number: US-ASTRAZENECA-2015SF22941

PATIENT
  Age: 87 Year
  Sex: Female

DRUGS (1)
  1. IRESSA [Suspect]
     Active Substance: GEFITINIB
     Indication: LUNG NEOPLASM MALIGNANT
     Route: 048
     Dates: start: 201508

REACTIONS (4)
  - Rash pustular [Unknown]
  - Skin disorder [Unknown]
  - Pruritus [Unknown]
  - Scratch [Unknown]

NARRATIVE: CASE EVENT DATE: 201511
